FAERS Safety Report 5356755-5 (Version None)
Quarter: 2007Q2

REPORT INFORMATION
  Report Type: 
  Country: None (occurrence: None)
  Receive Date: 20070530
  Receipt Date: 20061107
  Transmission Date: 20071010
  Serious: Yes (Other)
  Sender: FDA-Public Use
  Company Number: US200608002650

PATIENT
  Age: 53 Year
  Sex: Male
  Weight: 106.1 kg

DRUGS (2)
  1. ZYPREXA [Suspect]
     Dosage: 10MG
     Dates: start: 20001001, end: 20011001
  2. SEROQUEL [Concomitant]

REACTIONS (2)
  - DIABETES MELLITUS [None]
  - DIABETIC COMA [None]
